FAERS Safety Report 17672592 (Version 1)
Quarter: 2020Q2

REPORT INFORMATION
  Report Type: Spontaneous
  Country: US (occurrence: US)
  Receive Date: 20200415
  Receipt Date: 20200415
  Transmission Date: 20200713
  Serious: No
  Sender: FDA-Public Use
  Company Number: US-ALKERMES INC.-ALK-2019-004558

PATIENT
  Age: 37 Year
  Sex: Female

DRUGS (3)
  1. DOXYCILLIN [Suspect]
     Active Substance: DOXYCYCLINE HYDROCHLORIDE
     Indication: FOLLICULITIS
     Dosage: UNK
     Route: 048
     Dates: start: 2019, end: 2019
  2. VIVITROL [Suspect]
     Active Substance: NALTREXONE
     Indication: DRUG DEPENDENCE
     Dosage: 380 MG, QMO
     Route: 030
     Dates: start: 20190705
  3. VIVITROL [Suspect]
     Active Substance: NALTREXONE
     Dosage: 380 MG, QMO
     Route: 030
     Dates: start: 20190312, end: 20190312

REACTIONS (3)
  - Folliculitis [Recovered/Resolved]
  - Product dose omission [Not Recovered/Not Resolved]
  - Ill-defined disorder [Recovered/Resolved]

NARRATIVE: CASE EVENT DATE: 2019
